FAERS Safety Report 7553174-8 (Version None)
Quarter: 2011Q2

REPORT INFORMATION
  Report Type: 
  Country: None (occurrence: None)
  Receive Date: 20110617
  Receipt Date: 20110608
  Transmission Date: 20111010
  Serious: Yes (Hospitalization)
  Sender: FDA-Public Use
  Company Number: SE-BIOGENIDEC-2011BI002339

PATIENT
  Age: 31 Year
  Sex: Female

DRUGS (2)
  1. ANAESTHETICS [Concomitant]
     Dates: start: 20100901, end: 20100901
  2. TYSABRI [Suspect]
     Indication: RELAPSING-REMITTING MULTIPLE SCLEROSIS
     Route: 042
     Dates: start: 20100202

REACTIONS (1)
  - SYNCOPE [None]
